FAERS Safety Report 7343448-8 (Version None)
Quarter: 2011Q1

REPORT INFORMATION
  Report Type: 
  Country: None (occurrence: None)
  Receive Date: 20110310
  Receipt Date: 20110128
  Transmission Date: 20110831
  Serious: Yes (Hospitalization)
  Sender: FDA-Public Use
  Company Number: US-BAYER-2011-021167

PATIENT
  Sex: Female
  Weight: 49.887 kg

DRUGS (7)
  1. YAZ [Suspect]
     Indication: DYSMENORRHOEA
  2. YASMIN [Suspect]
     Indication: DYSMENORRHOEA
  3. YASMIN [Suspect]
     Indication: PREMENSTRUAL SYNDROME
  4. IBUPROFEN [Concomitant]
     Indication: PAIN
  5. YAZ [Suspect]
     Indication: ENDOMETRIOSIS
     Dosage: UNK
     Dates: start: 20060101, end: 20080101
  6. YASMIN [Suspect]
     Indication: ENDOMETRIOSIS
     Dosage: UNK
     Dates: start: 20040101, end: 20060101
  7. YAZ [Suspect]
     Indication: PREMENSTRUAL SYNDROME

REACTIONS (5)
  - ABDOMINAL DISCOMFORT [None]
  - VOMITING [None]
  - LOSS OF CONSCIOUSNESS [None]
  - PAIN [None]
  - DIARRHOEA [None]
